FAERS Safety Report 6962118-9 (Version None)
Quarter: 2010Q3

REPORT INFORMATION
  Report Type: 
  Country: None (occurrence: None)
  Receive Date: 20100901
  Receipt Date: 20100901
  Transmission Date: 20110219
  Serious: No
  Sender: FDA-Public Use
  Company Number: None

PATIENT
  Age: 30 Year
  Sex: Female
  Weight: 79.3795 kg

DRUGS (4)
  1. ABILIFY [Suspect]
     Dosage: 2 MG ONCE PO
     Route: 048
     Dates: start: 20100708, end: 20100831
  2. AMBIEN [Concomitant]
  3. PAXIL [Concomitant]
  4. DOXYCYCLINE [Concomitant]

REACTIONS (4)
  - CONTUSION [None]
  - MEAN CELL HAEMOGLOBIN INCREASED [None]
  - RED CELL DISTRIBUTION WIDTH DECREASED [None]
  - SOMNOLENCE [None]
